FAERS Safety Report 8007267-1 (Version None)
Quarter: 2011Q4

REPORT INFORMATION
  Report Type: 
  Country: None (occurrence: None)
  Receive Date: 20111123
  Receipt Date: 20110901
  Transmission Date: 20120403
  Serious: No
  Sender: FDA-Public Use
  Company Number: 330866

PATIENT
  Age: 66 Year
  Sex: Female

DRUGS (1)
  1. VICTOZA [Suspect]
     Indication: TYPE 2 DIABETES MELLITUS
     Dosage: 108 MG, QD, SUBCUTANEOUS
     Route: 058
     Dates: start: 20110401

REACTIONS (2)
  - DIARRHOEA [None]
  - FLATULENCE [None]
